FAERS Safety Report 9652395 (Version 1)
Quarter: 2013Q4

REPORT INFORMATION
  Report Type: Spontaneous
  Country: US (occurrence: US)
  Receive Date: 20131029
  Receipt Date: 20131029
  Transmission Date: 20140711
  Serious: No
  Sender: FDA-Public Use
  Company Number: US-BIOGENIDEC-2013BI076109

PATIENT
  Sex: Female

DRUGS (13)
  1. TECFIDERA [Suspect]
     Indication: MULTIPLE SCLEROSIS
     Route: 048
     Dates: start: 20130509, end: 20130708
  2. CLONAZEPAM [Concomitant]
  3. OMEPRAZOLE [Concomitant]
  4. BETAMETH DIP CAE [Concomitant]
  5. SIMETHICONE CHW [Concomitant]
  6. ADVIL PM [Concomitant]
  7. ADVIL [Concomitant]
  8. POT GLUCONAT [Concomitant]
  9. VITAMIN C [Concomitant]
  10. PREMARIN [Concomitant]
  11. CALCIUM [Concomitant]
  12. SULFASALAZINE [Concomitant]
  13. FLUTICASONE SPR [Concomitant]

REACTIONS (1)
  - White blood cell count decreased [Unknown]
